FAERS Safety Report 17877513 (Version 2)
Quarter: 2020Q2

REPORT INFORMATION
  Report Type: Report from Study
  Country: BR (occurrence: BR)
  Receive Date: 20200609
  Receipt Date: 20200622
  Transmission Date: 20200714
  Serious: Yes (Hospitalization)
  Sender: FDA-Public Use
  Company Number: NVSC2020BR160133

PATIENT
  Age: 62 Year
  Sex: Male
  Weight: 60 kg

DRUGS (5)
  1. HYABAK [Concomitant]
     Active Substance: HYALURONATE SODIUM
     Indication: EYE LUBRICATION THERAPY
     Dosage: 1 DRP, BID
     Route: 065
  2. ENTRESTO [Suspect]
     Active Substance: SACUBITRIL\VALSARTAN
     Indication: ANGINA PECTORIS
     Dosage: 100 MG, Q12H (49/51 MG), START DATE(6 MONTHS AGO)
     Route: 048
  3. NOVORAPID [Concomitant]
     Active Substance: INSULIN ASPART
     Indication: DIABETES MELLITUS
     Dosage: 20 IU, QD, START DATE 30 YEARS AGO
     Route: 058
  4. NPH INSULIN [Concomitant]
     Active Substance: INSULIN BEEF
     Indication: DIABETES MELLITUS
     Dosage: 60 IU, QD, START DATE 30 YEARS AGO
     Route: 058
  5. GLIFAGE [Concomitant]
     Active Substance: METFORMIN HYDROCHLORIDE
     Indication: DIABETES MELLITUS
     Dosage: UNK UNK, QD, 2 TABLETS, START DATE 30 YEARS AGO
     Route: 048

REACTIONS (3)
  - Chest pain [Recovering/Resolving]
  - Malaise [Unknown]
  - Product use in unapproved indication [Unknown]

NARRATIVE: CASE EVENT DATE: 20200530
